FAERS Safety Report 7354416-4 (Version None)
Quarter: 2011Q1

REPORT INFORMATION
  Report Type: 
  Country: None (occurrence: None)
  Receive Date: 20110316
  Receipt Date: 20110308
  Transmission Date: 20110831
  Serious: Yes (Hospitalization, Disabling)
  Sender: FDA-Public Use
  Company Number: PHHO2010FR10379

PATIENT
  Sex: Male
  Weight: 66 kg

DRUGS (6)
  1. PLACEBO [Suspect]
     Indication: CARCINOID TUMOUR
     Dosage: CODE NOT BROKEN
     Route: 048
     Dates: start: 20070830
  2. LYSANXIA [Concomitant]
  3. INDAPAMIDE [Concomitant]
  4. SANDOSTATIN LAR [Concomitant]
     Indication: CARCINOID TUMOUR
     Dosage: UNK
     Dates: start: 20070830
  5. RAD001 [Suspect]
     Indication: CARCINOID TUMOUR
     Dosage: 10 MG/DAY
     Dates: start: 20090825
  6. ELISOR [Concomitant]

REACTIONS (6)
  - BONE FISSURE [None]
  - ARTHRALGIA [None]
  - OEDEMA PERIPHERAL [None]
  - OEDEMA [None]
  - BONE MARROW OEDEMA [None]
  - COMPLEX REGIONAL PAIN SYNDROME [None]
